FAERS Safety Report 17064425 (Version 2)
Quarter: 2019Q4

REPORT INFORMATION
  Report Type: Report from Study
  Country: US (occurrence: US)
  Receive Date: 20191122
  Receipt Date: 20191205
  Transmission Date: 20200122
  Serious: Yes (Other)
  Sender: FDA-Public Use
  Company Number: US-AMGEN INC.-USASL2019057842

PATIENT
  Age: 30 Year
  Sex: Female
  Weight: 195 kg

DRUGS (1)
  1. AIMOVIG [Suspect]
     Active Substance: ERENUMAB-AOOE
     Indication: MIGRAINE
     Dosage: 70 MILLIGRAM, QMO
     Route: 058
     Dates: start: 201810

REACTIONS (3)
  - Pneumonia [Recovered/Resolved]
  - Intentional product misuse [Unknown]
  - Influenza [Recovering/Resolving]
